FAERS Safety Report 4989036-X (Version None)
Quarter: 2006Q2

REPORT INFORMATION
  Report Type: 
  Country: None (occurrence: None)
  Receive Date: 20060425
  Receipt Date: 20060410
  Transmission Date: 20061013
  Serious: Yes (Hospitalization)
  Sender: FDA-Public Use
  Company Number: 06-000341

PATIENT
  Age: 47 Year

DRUGS (1)
  1. DOVONEX [Suspect]

REACTIONS (3)
  - ECZEMA INFECTED [None]
  - HYPERKERATOSIS [None]
  - HYPERSENSITIVITY [None]
